FAERS Safety Report 8531458-4 (Version None)
Quarter: 2012Q3

REPORT INFORMATION
  Report Type: 
  Country: None (occurrence: None)
  Receive Date: 20120723
  Receipt Date: 20120712
  Transmission Date: 20120928
  Serious: Yes (Other)
  Sender: FDA-Public Use
  Company Number: JP-VERTEX PHARMACEUTICALS INC.-AE-2012-006175

PATIENT
  Age: 70 Year
  Sex: Female

DRUGS (16)
  1. HIRUDOID LOTION [Concomitant]
     Route: 051
     Dates: end: 20120706
  2. REBETOL [Concomitant]
     Route: 048
     Dates: start: 20120210, end: 20120308
  3. REBETOL [Concomitant]
     Route: 048
     Dates: start: 20120330, end: 20120524
  4. URSO 250 [Concomitant]
     Route: 048
     Dates: end: 20120216
  5. REBETOL [Concomitant]
     Route: 048
     Dates: start: 20120629, end: 20120706
  6. DAI-KENCHU-TO [Concomitant]
     Route: 048
  7. CEREKINON [Concomitant]
     Route: 048
  8. CELEBREX [Concomitant]
     Route: 048
  9. NEXIUM [Concomitant]
     Route: 048
  10. TELAVIC (TELAPREVIR) [Suspect]
     Indication: HEPATITIS C
     Route: 048
     Dates: start: 20120120, end: 20120308
  11. TELAVIC (TELAPREVIR) [Suspect]
     Route: 048
     Dates: start: 20120309
  12. PEGINTERFERON ALFA-2B [Concomitant]
     Indication: HEPATITIS C
     Route: 058
     Dates: start: 20120120, end: 20120706
  13. HIRUDOID [Concomitant]
     Route: 061
     Dates: start: 20120120
  14. REBETOL [Concomitant]
     Indication: HEPATITIS C
     Route: 048
     Dates: start: 20120120, end: 20120209
  15. REBETOL [Concomitant]
     Route: 048
     Dates: start: 20120309, end: 20120315
  16. VOLTAREN [Concomitant]
     Route: 048
     Dates: start: 20120120, end: 20120401

REACTIONS (3)
  - PERICARDIAL EFFUSION [None]
  - RENAL IMPAIRMENT [None]
  - HAEMOGLOBIN DECREASED [None]
